FAERS Safety Report 5299481-3 (Version None)
Quarter: 2007Q2

REPORT INFORMATION
  Report Type: 
  Country: None (occurrence: None)
  Receive Date: 20070417
  Receipt Date: 20070416
  Transmission Date: 20071010
  Serious: Yes (Other)
  Sender: FDA-Public Use
  Company Number: US-GLAXOSMITHKLINE-A0647116A

PATIENT
  Age: 23 Year
  Sex: Female

DRUGS (1)
  1. SOMINEX [Suspect]
     Indication: INTENTIONAL OVERDOSE
     Dosage: 15CAPL SINGLE DOSE
     Route: 048
     Dates: start: 20070413, end: 20070413

REACTIONS (2)
  - INTENTIONAL OVERDOSE [None]
  - SOMNOLENCE [None]
